FAERS Safety Report 19657176 (Version 6)
Quarter: 2022Q1

REPORT INFORMATION
  Report Type: Report from Study
  Country: US (occurrence: US)
  Receive Date: 20210804
  Receipt Date: 20220308
  Transmission Date: 20220423
  Serious: Yes (Hospitalization, Other)
  Sender: FDA-Public Use
  Company Number: US-SA-2016SA106505

PATIENT
  Age: 54 Year
  Sex: Female
  Weight: 81.6 kg

DRUGS (6)
  1. TERIFLUNOMIDE [Suspect]
     Active Substance: TERIFLUNOMIDE
     Indication: Multiple sclerosis
     Dosage: 7 MG, QD
     Route: 048
     Dates: start: 20130219, end: 20130318
  2. TERIFLUNOMIDE [Suspect]
     Active Substance: TERIFLUNOMIDE
     Dosage: 14 MG, QD
     Route: 048
     Dates: start: 20130319, end: 20130812
  3. TERIFLUNOMIDE [Suspect]
     Active Substance: TERIFLUNOMIDE
     Dosage: 14 MG, QD
     Route: 048
     Dates: start: 20160619, end: 20190101
  4. TERIFLUNOMIDE [Suspect]
     Active Substance: TERIFLUNOMIDE
     Dosage: 14 MG, QD
     Route: 048
     Dates: start: 20210912
  5. FOLIC ACID [Concomitant]
     Active Substance: FOLIC ACID
     Dosage: UNK UNK,QD
     Route: 065
     Dates: start: 201509
  6. FLUTICASONE [Concomitant]
     Active Substance: FLUTICASONE
     Indication: Sinus disorder
     Dosage: UNK
     Route: 065
     Dates: start: 201602

REACTIONS (25)
  - Lung neoplasm malignant [Recovered/Resolved]
  - Multiple sclerosis relapse [Not Recovered/Not Resolved]
  - Sensory disturbance [Not Recovered/Not Resolved]
  - Nerve injury [Unknown]
  - Back pain [Unknown]
  - Dyspepsia [Not Recovered/Not Resolved]
  - Abdominal discomfort [Recovered/Resolved]
  - Oesophageal pain [Unknown]
  - Pain [Unknown]
  - Neck pain [Unknown]
  - Cough [Unknown]
  - Oropharyngeal pain [Unknown]
  - Illness [Unknown]
  - Bloody discharge [Unknown]
  - Discharge [Unknown]
  - Chest discomfort [Unknown]
  - Blood cholesterol increased [Unknown]
  - Nerve compression [Unknown]
  - Unevaluable event [Unknown]
  - Diarrhoea [Recovered/Resolved]
  - Nausea [Recovered/Resolved]
  - Alopecia [Recovered/Resolved]
  - Headache [Recovered/Resolved]
  - Hypoaesthesia [Unknown]
  - Alopecia [Not Recovered/Not Resolved]

NARRATIVE: CASE EVENT DATE: 20160618
